FAERS Safety Report 6564678-9 (Version None)
Quarter: 2010Q1

REPORT INFORMATION
  Report Type: 
  Country: None (occurrence: None)
  Receive Date: 20100201
  Receipt Date: 20100120
  Transmission Date: 20100710
  Serious: Yes (Disabling)
  Sender: FDA-Public Use
  Company Number: JP-BAYER-200914626BYL

PATIENT
  Age: 80 Year
  Sex: Male
  Weight: 61 kg

DRUGS (5)
  1. NEXAVAR [Suspect]
     Indication: HEPATIC NEOPLASM MALIGNANT
     Dosage: TOTAL DAILY DOSE: 800 MG  UNIT DOSE: 200 MG
     Route: 048
     Dates: start: 20091113, end: 20091118
  2. CEREKINON [Concomitant]
     Indication: ABDOMINAL DISCOMFORT
     Dosage: UNIT DOSE: 100 MG
  3. NAUZELIN [Concomitant]
     Indication: NAUSEA
     Route: 048
  4. OXYCONTIN [Concomitant]
     Indication: CANCER PAIN
     Dosage: UNIT DOSE: 10 MG
     Route: 048
  5. OXINORM [Concomitant]
     Indication: CANCER PAIN
     Route: 048

REACTIONS (3)
  - ALTERED STATE OF CONSCIOUSNESS [None]
  - BLOOD CREATINE PHOSPHOKINASE INCREASED [None]
  - HEPATIC FUNCTION ABNORMAL [None]
